FAERS Safety Report 15967052 (Version 1)
Quarter: 2019Q1

REPORT INFORMATION
  Report Type: Report from Study
  Country: US (occurrence: US)
  Receive Date: 20190215
  Receipt Date: 20190215
  Transmission Date: 20190418
  Serious: Yes (Hospitalization)
  Sender: FDA-Public Use
  Company Number: US-SA-2019SA038322

PATIENT
  Age: 76 Year
  Sex: Female

DRUGS (1)
  1. INSULIN GLARGINE [Suspect]
     Active Substance: INSULIN GLARGINE
     Indication: TYPE 2 DIABETES MELLITUS
     Dosage: 22-24 UNITS, QD
     Route: 058

REACTIONS (3)
  - Coronary artery thrombosis [Recovered/Resolved]
  - Skin ulcer [Not Recovered/Not Resolved]
  - Joint lock [Not Recovered/Not Resolved]

NARRATIVE: CASE EVENT DATE: 20120626
